FAERS Safety Report 14804450 (Version 1)
Quarter: 2018Q2

REPORT INFORMATION
  Report Type: Report from Study
  Country: US (occurrence: US)
  Receive Date: 20180425
  Receipt Date: 20180425
  Transmission Date: 20180711
  Serious: Yes (Other)
  Sender: FDA-Public Use
  Company Number: US-AMGEN-USASL2018035694

PATIENT
  Age: 76 Year
  Sex: Male

DRUGS (3)
  1. REPATHA [Suspect]
     Active Substance: EVOLOCUMAB
     Indication: ARTERIOSCLEROSIS
     Dosage: UNK
     Route: 065
  2. REPATHA [Suspect]
     Active Substance: EVOLOCUMAB
     Indication: HYPERCHOLESTEROLAEMIA
     Dosage: 140 MG/ML, Q2WK
     Route: 065
  3. EZETIMIBE. [Suspect]
     Active Substance: EZETIMIBE
     Indication: PRODUCT USED FOR UNKNOWN INDICATION
     Dosage: 10 MG, UNK
     Route: 065
     Dates: start: 201804, end: 201804

REACTIONS (13)
  - Sinus congestion [Unknown]
  - Oral herpes [Unknown]
  - Tongue discolouration [Unknown]
  - Sticky skin [Unknown]
  - Fatigue [Unknown]
  - Cheilitis [Unknown]
  - Lip disorder [Unknown]
  - Asthenia [Unknown]
  - Dysphonia [Unknown]
  - Swelling face [Unknown]
  - Oral mucosal exfoliation [Unknown]
  - Dry mouth [Unknown]
  - Lip swelling [Unknown]

NARRATIVE: CASE EVENT DATE: 201804
